FAERS Safety Report 17061283 (Version 1)
Quarter: 2019Q4

REPORT INFORMATION
  Report Type: Spontaneous
  Country: US (occurrence: US)
  Receive Date: 20191121
  Receipt Date: 20191121
  Transmission Date: 20200122
  Serious: No
  Sender: FDA-Public Use
  Company Number: US-ARRAY-2019-06665

PATIENT

DRUGS (4)
  1. MEKTOVI [Suspect]
     Active Substance: BINIMETINIB
     Indication: COLON CANCER
     Dosage: UNK
  2. BRAFTOVI [Suspect]
     Active Substance: ENCORAFENIB
     Indication: COLON CANCER
     Dosage: UNK
     Route: 048
  3. MEKTOVI [Suspect]
     Active Substance: BINIMETINIB
     Dosage: 15 MG, BID
     Route: 048
  4. BRAFTOVI [Suspect]
     Active Substance: ENCORAFENIB
     Dosage: 300 MG, QD
     Route: 048

REACTIONS (5)
  - Nausea [Recovering/Resolving]
  - Vomiting [Recovering/Resolving]
  - Product use in unapproved indication [Unknown]
  - Diarrhoea [Recovering/Resolving]
  - Fatigue [Recovering/Resolving]

NARRATIVE: CASE EVENT DATE: 20190320
